FAERS Safety Report 20749665 (Version 1)
Quarter: 2022Q2

REPORT INFORMATION
  Report Type: Spontaneous
  Country: US (occurrence: US)
  Receive Date: 20220426
  Receipt Date: 20220426
  Transmission Date: 20220721
  Serious: Yes (Hospitalization, Other)
  Sender: FDA-Public Use
  Company Number: US-MYLANLABS-2022M1030487

PATIENT
  Age: 6 Day
  Sex: Male

DRUGS (12)
  1. VANCOMYCIN [Suspect]
     Active Substance: VANCOMYCIN
     Indication: Staphylococcal infection
     Dosage: 10 MILLIGRAM/KILOGRAM, BID
     Route: 065
  2. LEVETIRACETAM [Suspect]
     Active Substance: LEVETIRACETAM
     Indication: Generalised tonic-clonic seizure
     Dosage: 60 MILLIGRAM/KILOGRAM
     Route: 065
  3. LEVETIRACETAM [Suspect]
     Active Substance: LEVETIRACETAM
     Dosage: 10 MILLIGRAM/KILOGRAM, BID
     Route: 065
  4. LEVETIRACETAM [Suspect]
     Active Substance: LEVETIRACETAM
     Indication: Generalised tonic-clonic seizure
     Dosage: UNK, RECEIVED CONTINUES LEVETIRACETAM INFUSION
  5. OXACILLIN [Suspect]
     Active Substance: OXACILLIN SODIUM
     Indication: Staphylococcal bacteraemia
     Dosage: 50 MILLIGRAM/KILOGRAM, Q8H
     Route: 065
  6. GENTAMICIN [Suspect]
     Active Substance: GENTAMICIN
     Indication: Staphylococcal bacteraemia
     Dosage: 1.5 MILLIGRAM/KILOGRAM, Q8H, RECEIVED FOR UP TO DAY OF LIFE (DOL) 14
     Route: 065
  7. CEFEPIME [Suspect]
     Active Substance: CEFEPIME HYDROCHLORIDE
     Indication: Gastrointestinal necrosis
     Dosage: 45 MILLIGRAM/KILOGRAM, BID
     Route: 065
  8. CEFEPIME [Suspect]
     Active Substance: CEFEPIME HYDROCHLORIDE
     Indication: Septic embolus
  9. METRONIDAZOLE [Suspect]
     Active Substance: METRONIDAZOLE
     Indication: Gastrointestinal necrosis
     Dosage: 7.5 MILLIGRAM/KILOGRAM, Q6H
     Route: 065
  10. METRONIDAZOLE [Suspect]
     Active Substance: METRONIDAZOLE
     Indication: Septic embolus
  11. ENOXAPARIN [Concomitant]
     Active Substance: ENOXAPARIN
     Indication: Thrombosis
     Dosage: UNK, BID; RECEIVED 2MG/KG/DOSE, 12 HOURS
     Route: 065
  12. DEXTROSE [Concomitant]
     Active Substance: DEXTROSE
     Indication: Hypoglycaemia
     Dosage: UNK; DEXTROSE-CONTAINING FLUIDS
     Route: 065

REACTIONS (1)
  - Drug ineffective [Unknown]
